FAERS Safety Report 6408408-X (Version None)
Quarter: 2009Q4

REPORT INFORMATION
  Report Type: 
  Country: None (occurrence: None)
  Receive Date: 20091019
  Receipt Date: 20091009
  Transmission Date: 20100525
  Serious: Yes (Death)
  Sender: FDA-Public Use
  Company Number: 2009US003754

PATIENT
  Age: 55 Year
  Sex: Male

DRUGS (1)
  1. PROGRAF [Suspect]
     Indication: BONE MARROW TRANSPLANT
     Dosage: 1.5 MG, BID, ORAL
     Route: 048
     Dates: start: 20090507, end: 20091003

REACTIONS (1)
  - DEATH [None]
